FAERS Safety Report 4737747-3 (Version None)
Quarter: 2005Q3

REPORT INFORMATION
  Report Type: 
  Country: None (occurrence: None)
  Receive Date: 20050802
  Receipt Date: 20050719
  Transmission Date: 20060218
  Serious: Yes (Death)
  Sender: FDA-Public Use
  Company Number: FABR-11123

PATIENT
  Age: 45 Year
  Sex: Male
  Weight: 55 kg

DRUGS (6)
  1. FABRAZYME [Suspect]
     Indication: FABRY'S DISEASE
     Dosage: 55 MG Q2WKS IV
     Route: 042
     Dates: start: 20041027, end: 20050525
  2. CALCITRIOL [Concomitant]
  3. FAMOTIDINE [Concomitant]
  4. CANDESARTAN CILEXETIL [Concomitant]
  5. NIFEDIPINE [Concomitant]
  6. CALCIUM CARBONATE, PRECIPITATED [Concomitant]

REACTIONS (4)
  - ALCOHOL USE [None]
  - CARDIAC FAILURE ACUTE [None]
  - CARDIO-RESPIRATORY ARREST [None]
  - HAEMODIALYSIS [None]
